FAERS Safety Report 23147375 (Version 1)
Quarter: 2023Q4

REPORT INFORMATION
  Report Type: Report from Study
  Country: CA (occurrence: CA)
  Receive Date: 20231106
  Receipt Date: 20231106
  Transmission Date: 20240110
  Serious: Yes (Other)
  Sender: FDA-Public Use
  Company Number: CA-JNJFOC-20221037106

PATIENT
  Age: 68 Year
  Sex: Male

DRUGS (2)
  1. REMICADE [Suspect]
     Active Substance: INFLIXIMAB
     Indication: Colitis ulcerative
     Dosage: 30-MAY-2023 APPOINTMENT REBOOKED ON 13-JUN-2023
     Route: 041
     Dates: start: 20180529
  2. METHOTREXATE [Concomitant]
     Active Substance: METHOTREXATE
     Indication: Product used for unknown indication
     Route: 048

REACTIONS (5)
  - Colitis ulcerative [Recovering/Resolving]
  - Dyspnoea [Unknown]
  - COVID-19 [Recovered/Resolved]
  - Nasopharyngitis [Recovered/Resolved]
  - Inappropriate schedule of product administration [Unknown]

NARRATIVE: CASE EVENT DATE: 20220801
